FAERS Safety Report 4589841-8 (Version None)
Quarter: 2005Q1

REPORT INFORMATION
  Report Type: 
  Country: None (occurrence: None)
  Receive Date: 20050223
  Receipt Date: 20030226
  Transmission Date: 20050727
  Serious: Yes (Disabling, Other)
  Sender: FDA-Public Use
  Company Number: JP-ABBOTT-03P-087-0212206-00

PATIENT
  Sex: Male

DRUGS (11)
  1. KALETRA [Suspect]
     Indication: HIV INFECTION
     Dates: start: 20020304
  2. DIDANOSINE [Suspect]
     Indication: HIV INFECTION
     Route: 048
     Dates: start: 20010421, end: 20010421
  3. DIDANOSINE [Suspect]
     Route: 048
     Dates: start: 20010401, end: 20010401
  4. SANILVUDINE [Suspect]
     Indication: HIV INFECTION
     Route: 048
     Dates: start: 20010801
  5. ABACAVIR [Suspect]
     Indication: HIV INFECTION
     Route: 048
     Dates: start: 20010801
  6. NELFINAVIR [Suspect]
     Indication: HIV INFECTION
     Route: 048
     Dates: start: 20010401, end: 20020303
  7. EFAVIRENZ [Suspect]
     Indication: HIV INFECTION
     Route: 048
     Dates: start: 20010401, end: 20020303
  8. LOPERAMIDE HYDROCHLORIDE [Concomitant]
     Indication: DIARRHOEA
     Route: 048
     Dates: start: 20010401
  9. RURIOCTOCOG ALFA [Concomitant]
     Indication: HAEMORRHAGE
     Route: 042
     Dates: start: 20010401
  10. FACTOR VIII, RECOMBINANT [Concomitant]
     Indication: DRUG USE FOR UNKNOWN INDICATION
     Dates: start: 19991101
  11. AMPRENAVIR [Concomitant]
     Indication: DRUG USE FOR UNKNOWN INDICATION
     Dates: start: 19990510, end: 19990817

REACTIONS (4)
  - ASEPTIC NECROSIS BONE [None]
  - CACHEXIA [None]
  - DIARRHOEA [None]
  - HYPERLACTACIDAEMIA [None]
